FAERS Safety Report 10770156 (Version 4)
Quarter: 2015Q2

REPORT INFORMATION
  Report Type: Spontaneous
  Country: US (occurrence: US)
  Receive Date: 20150206
  Receipt Date: 20150512
  Transmission Date: 20150821
  Serious: Yes (Death, Hospitalization, Other)
  Sender: FDA-Public Use
  Company Number: US-009507513-1203USA00030

PATIENT
  Sex: Female
  Weight: 53.61 kg

DRUGS (3)
  1. FOSAMAX [Suspect]
     Active Substance: ALENDRONATE SODIUM
     Indication: OSTEOPOROSIS
     Dosage: 10 MG, UNK
     Route: 048
     Dates: start: 1997
  2. BONIVA [Suspect]
     Active Substance: IBANDRONATE SODIUM
     Indication: OSTEOPOROSIS
     Dosage: 150 MG, UNK
     Route: 048
     Dates: start: 20050913, end: 2010
  3. FOSAMAX [Suspect]
     Active Substance: ALENDRONATE SODIUM
     Dosage: 70 MG, UNK
     Route: 048
     Dates: end: 200509

REACTIONS (25)
  - Cardiac arrest [Fatal]
  - Pubis fracture [Unknown]
  - Arthritis [Unknown]
  - Callus formation delayed [Unknown]
  - Mass [Unknown]
  - Haematoma [Unknown]
  - Emphysema [Unknown]
  - Hypertension [Unknown]
  - Laceration [Unknown]
  - Hypotension [Unknown]
  - Fracture displacement [Unknown]
  - Pulmonary embolism [Fatal]
  - Fractured coccyx [Unknown]
  - Nausea [Unknown]
  - Vomiting [Unknown]
  - Femur fracture [Unknown]
  - Anxiety [Unknown]
  - Intramedullary rod insertion [Unknown]
  - Low turnover osteopathy [Unknown]
  - Encephalopathy [Unknown]
  - Respiratory failure [Fatal]
  - Medical device removal [Unknown]
  - Skin fibrosis [Unknown]
  - Pyrexia [Unknown]
  - Liver function test abnormal [Unknown]

NARRATIVE: CASE EVENT DATE: 20080808
